FAERS Safety Report 23714014 (Version 1)
Quarter: 2024Q2

REPORT INFORMATION
  Report Type: Spontaneous
  Country: CA (occurrence: CA)
  Receive Date: 20240405
  Receipt Date: 20240405
  Transmission Date: 20240715
  Serious: Yes (Other)
  Sender: FDA-Public Use
  Company Number: CA-TAIHOP-2024-003437

PATIENT
  Age: 33 Year
  Sex: Male

DRUGS (5)
  1. LONSURF [Suspect]
     Active Substance: TIPIRACIL HYDROCHLORIDE\TRIFLURIDINE
     Indication: Colorectal cancer metastatic
     Dosage: DOSE, FREQUENCY AND CYCLE WERE UNKNOWN.
     Route: 048
  2. LEUCOVORIN CALCIUM [Suspect]
     Active Substance: LEUCOVORIN CALCIUM
     Indication: Colorectal cancer metastatic
     Route: 050
  3. OXALIPLATIN [Suspect]
     Active Substance: OXALIPLATIN
     Indication: Colorectal cancer metastatic
     Route: 050
  4. IRINOTECAN HYDROCHLORIDE [Suspect]
     Active Substance: IRINOTECAN HYDROCHLORIDE
     Indication: Colorectal cancer metastatic
     Dosage: FORM OF ADMIN: SOLUTION INTRAVENOUS.
     Route: 042
  5. ERBITUX [Suspect]
     Active Substance: CETUXIMAB
     Indication: Colorectal cancer metastatic
     Dosage: FORM OF ADMIN: SOLUTION INTRAVENOUS.
     Route: 042

REACTIONS (1)
  - Malignant neoplasm progression [Unknown]
